FAERS Safety Report 12297181 (Version 1)
Quarter: 2016Q2

REPORT INFORMATION
  Report Type: Report from Study
  Country: CA (occurrence: CA)
  Receive Date: 20160422
  Receipt Date: 20160422
  Transmission Date: 20160815
  Serious: Yes (Hospitalization, Other)
  Sender: FDA-Public Use
  Company Number: CA-ABBVIE-15K-028-1379518-00

PATIENT
  Age: 37 Year
  Sex: Male
  Weight: 113.5 kg

DRUGS (2)
  1. AZATHIOPRINE. [Concomitant]
     Active Substance: AZATHIOPRINE
     Indication: CROHN^S DISEASE
     Route: 048
     Dates: start: 20120518
  2. HUMIRA [Suspect]
     Active Substance: ADALIMUMAB
     Indication: CROHN^S DISEASE
     Route: 058
     Dates: start: 20131119, end: 20150511

REACTIONS (6)
  - Pain in extremity [Not Recovered/Not Resolved]
  - Hypersensitivity vasculitis [Unknown]
  - Purpura [Recovered/Resolved]
  - Pain in extremity [Unknown]
  - Antinuclear antibody positive [Unknown]
  - Rash macular [Recovering/Resolving]

NARRATIVE: CASE EVENT DATE: 201501
